FAERS Safety Report 24996297 (Version 1)
Quarter: 2025Q1

REPORT INFORMATION
  Report Type: Spontaneous
  Country: US (occurrence: US)
  Receive Date: 20250221
  Receipt Date: 20250221
  Transmission Date: 20250409
  Serious: No
  Sender: PFIZER
  Company Number: US-PFIZER INC-202500033113

PATIENT
  Age: 58 Year
  Sex: Female

DRUGS (1)
  1. TUKYSA [Suspect]
     Active Substance: TUCATINIB
     Indication: HER2 positive salivary gland cancer
     Dosage: 300 MG, 2X/DAY(TAKE TWO 150MG TABLETS BY MOUTH TWICE DAILY)
     Route: 048
     Dates: start: 20241110, end: 20250218

REACTIONS (2)
  - Neoplasm progression [Unknown]
  - Off label use [Unknown]
